FAERS Safety Report 8612943-3 (Version None)
Quarter: 2012Q3

REPORT INFORMATION
  Report Type: 
  Country: None (occurrence: None)
  Receive Date: 20120822
  Receipt Date: 20120813
  Transmission Date: 20120928
  Serious: Yes (Other)
  Sender: FDA-Public Use
  Company Number: CHPA2012US018146

PATIENT
  Age: 78 Year
  Sex: Female

DRUGS (3)
  1. BISMUTH SUBSALICYLATE [Suspect]
     Dosage: UNK, UNK
  2. GAS-X EXTRA STRENGTH [Suspect]
     Indication: FLATULENCE
     Dosage: 3 SOFTGELS, PER DAY
     Route: 048
  3. PROBIOTICS [Concomitant]

REACTIONS (3)
  - FAECES DISCOLOURED [None]
  - CATARACT [None]
  - SPINAL COLUMN INJURY [None]
